FAERS Safety Report 6409775-3 (Version None)
Quarter: 2009Q4

REPORT INFORMATION
  Report Type: 
  Country: None (occurrence: None)
  Receive Date: 20091021
  Receipt Date: 20091021
  Transmission Date: 20100525
  Serious: Yes (Death)
  Sender: FDA-Public Use
  Company Number: None

PATIENT
  Age: 79 Year
  Sex: Male

DRUGS (1)
  1. WARFARIN SODIUM [Suspect]
     Dosage: ATRIAL FIBRILLATION

REACTIONS (7)
  - CEREBELLAR HAEMORRHAGE [None]
  - DEPRESSED LEVEL OF CONSCIOUSNESS [None]
  - DIPLOPIA [None]
  - DIZZINESS [None]
  - HAEMORRHAGIC STROKE [None]
  - HEADACHE [None]
  - HYPERHIDROSIS [None]
